FAERS Safety Report 19427143 (Version 1)
Quarter: 2021Q2

REPORT INFORMATION
  Report Type: Spontaneous
  Country: CA (occurrence: CA)
  Receive Date: 20210617
  Receipt Date: 20210617
  Transmission Date: 20210717
  Serious: Yes (Other)
  Sender: FDA-Public Use
  Company Number: CA-ORION CORPORATION ORION PHARMA-21_00014826

PATIENT
  Age: 45 Year
  Sex: Female

DRUGS (2)
  1. METHOTREXATE (TRADE NAME UNKNOWN) [Suspect]
     Active Substance: METHOTREXATE
     Indication: PRODUCT USED FOR UNKNOWN INDICATION
     Route: 065
     Dates: start: 2020
  2. INFLECTRA [Concomitant]
     Active Substance: INFLIXIMAB-DYYB
     Indication: SARCOIDOSIS
     Route: 042

REACTIONS (2)
  - Treatment failure [Unknown]
  - Nerve injury [Unknown]

NARRATIVE: CASE EVENT DATE: 2020
